FAERS Safety Report 12265744 (Version 1)
Quarter: 2016Q2

REPORT INFORMATION
  Report Type: Spontaneous
  Country: US (occurrence: US)
  Receive Date: 20160413
  Receipt Date: 20160413
  Transmission Date: 20160815
  Serious: Yes (Other)
  Sender: FDA-Public Use
  Company Number: US-SMITH AND NEPHEW, INC-2016SMT00308

PATIENT
  Age: 83 Year
  Sex: Male
  Weight: 106.58 kg

DRUGS (3)
  1. INSULIN (UNSPECIFIED) [Concomitant]
     Dosage: UNK
  2. REGRANEX [Suspect]
     Active Substance: BECAPLERMIN
     Indication: DIABETIC FOOT
     Dosage: UNK, 1X/DAY
     Route: 061
     Dates: start: 201602
  3. UNSPECIFIED DIURETIC [Concomitant]
     Active Substance: UNSPECIFIED INGREDIENT
     Dosage: UNK

REACTIONS (3)
  - Application site necrosis [Unknown]
  - Wound complication [Unknown]
  - Infection [Unknown]

NARRATIVE: CASE EVENT DATE: 201603
